FAERS Safety Report 5833383-6 (Version None)
Quarter: 2008Q3

REPORT INFORMATION
  Report Type: 
  Country: None (occurrence: None)
  Receive Date: 20080805
  Receipt Date: 20080728
  Transmission Date: 20090109
  Serious: Yes (Hospitalization, Other)
  Sender: FDA-Public Use
  Company Number: CH-WYE-G01678808

PATIENT
  Age: 54 Year
  Sex: Male

DRUGS (1)
  1. NONACOG ALFA [Suspect]
     Indication: FACTOR IX DEFICIENCY
     Dosage: 1 DOSE EVERY 1 PRN

REACTIONS (3)
  - ANAEMIA [None]
  - LEUKOPENIA [None]
  - METASTATIC BRONCHIAL CARCINOMA [None]
